FAERS Safety Report 7405088-1 (Version None)
Quarter: 2011Q1

REPORT INFORMATION
  Report Type: 
  Country: None (occurrence: None)
  Receive Date: 20110301
  Receipt Date: 20100701
  Transmission Date: 20110831
  Serious: Yes (Hospitalization, Other)
  Sender: FDA-Public Use
  Company Number: RB-12453-2010

PATIENT
  Age: 24 Month
  Sex: Male

DRUGS (1)
  1. SUBUTEX [Suspect]
     Indication: ACCIDENTAL EXPOSURE
     Dosage: PATIENT SWALLOWED ABOUT HALF OF AN 8 MG TABLET, ORAL
     Route: 048

REACTIONS (2)
  - ACCIDENTAL EXPOSURE [None]
  - NO ADVERSE EVENT [None]
